FAERS Safety Report 5426828-7 (Version None)
Quarter: 2007Q3

REPORT INFORMATION
  Report Type: 
  Country: None (occurrence: None)
  Receive Date: 20070827
  Receipt Date: 20070806
  Transmission Date: 20080115
  Serious: No
  Sender: FDA-Public Use
  Company Number: US-BOEHRINGER INGELHEIM PHARMACEUTICALS, INC.-2007-BP-18119BP

PATIENT
  Age: 71 Year
  Sex: Male
  Weight: 77 kg

DRUGS (4)
  1. FLOMAX [Suspect]
     Indication: BENIGN PROSTATIC HYPERPLASIA
     Route: 048
     Dates: start: 20050901, end: 20060801
  2. DILANTIN [Concomitant]
  3. PHENOBARBITAL TAB [Concomitant]
  4. LAMICTAL [Concomitant]

REACTIONS (2)
  - CONFUSIONAL STATE [None]
  - PANIC ATTACK [None]
